FAERS Safety Report 22264239 (Version 1)
Quarter: 2023Q2

REPORT INFORMATION
  Report Type: Spontaneous
  Country: JP (occurrence: None)
  Receive Date: 20230428
  Receipt Date: 20230428
  Transmission Date: 20230722
  Serious: Yes (Hospitalization, Other)
  Sender: FDA-Public Use
  Company Number: 2023A094951

PATIENT
  Sex: Female

DRUGS (1)
  1. TEZSPIRE [Suspect]
     Active Substance: TEZEPELUMAB-EKKO
     Indication: Asthma
     Dosage: DOSE UNKNOWN210.0MG UNKNOWN
     Route: 058
     Dates: start: 202212

REACTIONS (8)
  - Coronary artery disease [Unknown]
  - Chest pain [Unknown]
  - Tooth infection [Unknown]
  - Palpitations [Unknown]
  - Arrhythmia [Unknown]
  - Tooth disorder [Unknown]
  - Dizziness [Unknown]
  - Dizziness [Unknown]

NARRATIVE: CASE EVENT DATE: 20221201
